FAERS Safety Report 13090715 (Version 1)
Quarter: 2017Q1

REPORT INFORMATION
  Report Type: Report from Study
  Country: None (occurrence: UY)
  Receive Date: 20170105
  Receipt Date: 20170105
  Transmission Date: 20170428
  Serious: Yes (Hospitalization)
  Sender: FDA-Public Use
  Company Number: UY-ABBVIE-17K-168-1827868-00

PATIENT
  Age: 41 Year
  Sex: Female

DRUGS (1)
  1. HUMIRA [Suspect]
     Active Substance: ADALIMUMAB
     Indication: RHEUMATOID ARTHRITIS
     Route: 058
     Dates: start: 20120701

REACTIONS (1)
  - Uterine polyp [Recovered/Resolved]

NARRATIVE: CASE EVENT DATE: 20161029
